FAERS Safety Report 7904680-5 (Version None)
Quarter: 2011Q4

REPORT INFORMATION
  Report Type: 
  Country: None (occurrence: None)
  Receive Date: 20111109
  Receipt Date: 20110921
  Transmission Date: 20120403
  Serious: Yes (Other)
  Sender: FDA-Public Use
  Company Number: FR-GLAXOSMITHKLINE-B0749938A

PATIENT
  Age: 37 Year
  Sex: Male
  Weight: 78 kg

DRUGS (1)
  1. MALARONE [Suspect]
     Indication: PROPHYLAXIS
     Dosage: 1TAB PER DAY
     Route: 048
     Dates: start: 20110701, end: 20110720

REACTIONS (2)
  - GENERAL SYMPTOM [None]
  - URTICARIA THERMAL [None]
